FAERS Safety Report 9646009 (Version 1)
Quarter: 2013Q4

REPORT INFORMATION
  Report Type: Spontaneous
  Country: US (occurrence: US)
  Receive Date: 20131025
  Receipt Date: 20131025
  Transmission Date: 20140711
  Serious: Yes (Other)
  Sender: FDA-Public Use
  Company Number: US-BRISTOL-MYERS SQUIBB COMPANY-19588391

PATIENT
  Age: 66 Year
  Sex: Female

DRUGS (1)
  1. ABILIFY TABS 10 MG [Suspect]
     Dosage: DOSE REDUCED TO 2MG

REACTIONS (2)
  - Mania [Unknown]
  - Insomnia [Unknown]
